FAERS Safety Report 9742533 (Version 2)
Quarter: 2013Q4

REPORT INFORMATION
  Report Type: Report from Study
  Country: CZ (occurrence: CZ)
  Receive Date: 20131210
  Receipt Date: 20131221
  Transmission Date: 20140711
  Serious: Yes (Death)
  Sender: FDA-Public Use
  Company Number: PHHY2013CZ142479

PATIENT
  Sex: Female

DRUGS (1)
  1. IMATINIB [Suspect]
     Dosage: UNK UKN, UNK
     Dates: start: 20040602, end: 20071112

REACTIONS (1)
  - Glioblastoma [Fatal]
